FAERS Safety Report 8791901 (Version 4)
Quarter: 2013Q1

REPORT INFORMATION
  Report Type: Spontaneous
  Country: US (occurrence: US)
  Receive Date: 20120918
  Receipt Date: 20130306
  Transmission Date: 20140127
  Serious: Yes (Hospitalization, Other)
  Sender: FDA-Public Use
  Company Number: US-BAYER-2012-095466

PATIENT
  Age: 9 Year
  Sex: Male
  Weight: 54 kg

DRUGS (5)
  1. EOVIST [Suspect]
     Indication: HEPATIC LESION
     Dosage: 10 ML, ONCE
     Route: 042
     Dates: start: 20120906, end: 20120906
  2. EOVIST [Suspect]
     Indication: NUCLEAR MAGNETIC RESONANCE IMAGING
  3. VITAMIN D [Concomitant]
     Dosage: 1 DF, QD
     Route: 048
  4. NITISINONE [Concomitant]
     Dosage: 48 MG, QD
     Route: 048
  5. AMINO ACIDS [Concomitant]
     Dosage: 140 G, QD
     Route: 048

REACTIONS (11)
  - Anaphylactic reaction [None]
  - Chest discomfort [None]
  - Pharyngeal oedema [None]
  - Swollen tongue [None]
  - Chest pain [None]
  - Oropharyngeal pain [None]
  - Throat tightness [None]
  - Cough [None]
  - Hyperhidrosis [None]
  - Blood pressure decreased [None]
  - Off label use [None]
